FAERS Safety Report 10704227 (Version 1)
Quarter: 2014Q4

REPORT INFORMATION
  Report Type: Report from Study
  Country: US (occurrence: None)
  Receive Date: 20141224
  Receipt Date: 20141224
  Transmission Date: 20150529
  Serious: No
  Sender: FDA-Public Use
  Company Number: CABO-14004950

PATIENT
  Age: 53 Year
  Sex: Male

DRUGS (4)
  1. MORPHINE (MORPHINE) [Concomitant]
  2. COMETRIQ [Suspect]
     Active Substance: CABOZANTINIB S-MALATE
     Indication: HEPATIC CANCER
     Route: 048
     Dates: start: 20141103, end: 20141106
  3. NEXAVAR (SORAFENIB TOSILATE) [Concomitant]
  4. SPIRONOLACTONE (SPIRONOLACTONE) [Concomitant]
     Active Substance: SPIRONOLACTONE

REACTIONS (3)
  - Off label use [None]
  - Oedema peripheral [None]
  - Swelling face [None]
